FAERS Safety Report 7959076-7 (Version None)
Quarter: 2011Q4

REPORT INFORMATION
  Report Type: 
  Country: None (occurrence: None)
  Receive Date: 20111206
  Receipt Date: 20111206
  Transmission Date: 20120403
  Serious: Yes (Other)
  Sender: FDA-Public Use
  Company Number: None

PATIENT
  Sex: Female
  Weight: 104.32 kg

DRUGS (1)
  1. CREON [Suspect]
     Indication: PANCREATITIS
     Dosage: 4 TO 6 PER MEAL
     Route: 002
     Dates: start: 20090501, end: 20111205

REACTIONS (4)
  - CHRONIC SINUSITIS [None]
  - NECK PAIN [None]
  - MUSCLE SPASMS [None]
  - ABDOMINAL PAIN [None]
